FAERS Safety Report 7359891-7 (Version None)
Quarter: 2011Q1

REPORT INFORMATION
  Report Type: 
  Country: None (occurrence: None)
  Receive Date: 20110317
  Receipt Date: 20110307
  Transmission Date: 20110831
  Serious: Yes (Hospitalization)
  Sender: FDA-Public Use
  Company Number: GB-BAYER-2011-022313

PATIENT
  Age: 69 Year
  Sex: Male

DRUGS (6)
  1. FUCIBET [Concomitant]
     Dosage: UNK
     Dates: start: 20101215
  2. DIPROBASE [Concomitant]
     Dosage: UNK
     Route: 061
     Dates: start: 20101115
  3. RAMIPRIL [Concomitant]
     Dosage: UNK
     Route: 048
     Dates: start: 20100216
  4. SUNITINIB [Suspect]
     Indication: TRANSITIONAL CELL CARCINOMA
     Dosage: 25 MG, UNK
     Dates: start: 20100812, end: 20101229
  5. ASPIRIN [Suspect]
     Dosage: UNK
     Route: 048
     Dates: start: 20100216
  6. PRASUGREL [Concomitant]
     Dosage: UNK
     Route: 048
     Dates: start: 20100216

REACTIONS (2)
  - GASTROINTESTINAL HAEMORRHAGE [None]
  - MELAENA [None]
